FAERS Safety Report 4491638-4 (Version None)
Quarter: 2004Q4

REPORT INFORMATION
  Report Type: 
  Country: None (occurrence: None)
  Receive Date: 20041101
  Receipt Date: 20041014
  Transmission Date: 20050328
  Serious: No
  Sender: FDA-Public Use
  Company Number: 2004AP05300

PATIENT
  Age: 61 Year
  Sex: Male
  Weight: 43 kg

DRUGS (10)
  1. DIPRIVAN [Suspect]
     Indication: INDUCTION OF ANAESTHESIA
     Dosage: 100 MG IV
     Route: 042
  2. TENORMIN [Suspect]
     Indication: HYPERTENSION
     Dosage: 50 MG DAILY PO
     Route: 048
  3. TENORMIN [Suspect]
     Indication: HYPERTENSION
     Dosage: 25 MG DAILY PO
     Route: 048
  4. DOPAMINE HCL [Suspect]
     Indication: HYPOTENSION
     Dosage: 25 MG IV
     Route: 042
  5. AMLODIPINE BESYLATE [Concomitant]
  6. VECURONIUM BROMIDE [Concomitant]
  7. SUCCINYLCHOLINE CHLORIDE [Concomitant]
  8. NITROUS OXIDE W/ OXYGEN [Concomitant]
  9. OXYGEN [Concomitant]
  10. SEVOFLURANE [Concomitant]

REACTIONS (8)
  - ARTERIOSPASM CORONARY [None]
  - DRUG INEFFECTIVE [None]
  - DRUG INTERACTION [None]
  - HYPOTENSION [None]
  - PRINZMETAL ANGINA [None]
  - SINUS BRADYCARDIA [None]
  - SUPRAVENTRICULAR EXTRASYSTOLES [None]
  - VENTRICULAR TACHYCARDIA [None]
